FAERS Safety Report 25646281 (Version 1)
Quarter: 2025Q3

REPORT INFORMATION
  Report Type: Spontaneous
  Country: EU (occurrence: EU)
  Receive Date: 20250805
  Receipt Date: 20250805
  Transmission Date: 20251021
  Serious: Yes (Other)
  Sender: MYLAN
  Company Number: EU-MYLANLABS-2025M1065504

PATIENT
  Sex: Male

DRUGS (8)
  1. VALPROATE [Suspect]
     Active Substance: VALPROIC ACID
     Indication: Product used for unknown indication
  2. VALPROATE [Suspect]
     Active Substance: VALPROIC ACID
     Route: 065
  3. VALPROATE [Suspect]
     Active Substance: VALPROIC ACID
     Route: 065
  4. VALPROATE [Suspect]
     Active Substance: VALPROIC ACID
  5. ETHOSUXIMIDE [Suspect]
     Active Substance: ETHOSUXIMIDE
     Indication: Product used for unknown indication
  6. ETHOSUXIMIDE [Suspect]
     Active Substance: ETHOSUXIMIDE
     Route: 065
  7. ETHOSUXIMIDE [Suspect]
     Active Substance: ETHOSUXIMIDE
     Route: 065
  8. ETHOSUXIMIDE [Suspect]
     Active Substance: ETHOSUXIMIDE

REACTIONS (3)
  - Personality change [Unknown]
  - Delirium [Unknown]
  - Aggression [Unknown]
